FAERS Safety Report 25262996 (Version 1)
Quarter: 2025Q2

REPORT INFORMATION
  Report Type: Spontaneous
  Country: US (occurrence: None)
  Receive Date: 20250501
  Receipt Date: 20250501
  Transmission Date: 20250717
  Serious: No
  Sender: FDA-CTU
  Company Number: None

PATIENT
  Sex: Female

DRUGS (1)
  1. RINVOQ [Suspect]
     Active Substance: UPADACITINIB
     Indication: Dermatitis
     Dosage: FREQUENCY : DAILY?
     Route: 048
     Dates: start: 20240207

REACTIONS (2)
  - Loss of therapeutic response [None]
  - Drug ineffective [None]
